FAERS Safety Report 5765263-9 (Version None)
Quarter: 2008Q2

REPORT INFORMATION
  Report Type: 
  Country: None (occurrence: None)
  Receive Date: 20080609
  Receipt Date: 20080609
  Transmission Date: 20081010
  Serious: No
  Sender: FDA-Public Use
  Company Number: None

PATIENT
  Age: 58 Year
  Sex: Female
  Weight: 102.0593 kg

DRUGS (3)
  1. TRICOR [Suspect]
     Indication: CONSTIPATION
     Dosage: I TABLET QD PO
     Route: 048
     Dates: start: 20080523, end: 20080606
  2. TRICOR [Suspect]
     Indication: GASTROINTESTINAL PAIN
     Dosage: I TABLET QD PO
     Route: 048
     Dates: start: 20080523, end: 20080606
  3. TRICOR [Suspect]
     Indication: NAUSEA
     Dosage: I TABLET QD PO
     Route: 048
     Dates: start: 20080523, end: 20080606

REACTIONS (3)
  - ABDOMINAL PAIN UPPER [None]
  - CONSTIPATION [None]
  - NAUSEA [None]
